FAERS Safety Report 7069115 (Version 2)
Quarter: 2014Q3

REPORT INFORMATION
  Report Type: Spontaneous
  Country: US (occurrence: None)
  Receive Date: 20090724
  Receipt Date: 20140925
  Transmission Date: 20150326
  Serious: Yes (Other)
  Sender: FDA-Public Use
  Company Number: 2009S1005513

PATIENT
  Age: 52 Year
  Sex: Female

DRUGS (4)
  1. LISINOPRIL/HYDROCHLOROTHIAZIDE (HYDROCHLOROTHIAZIDE, LISINOPRIL) [Concomitant]
  2. NORVASC [Concomitant]
     Active Substance: AMLODIPINE BESYLATE
  3. PHOSPHO-SODA [Suspect]
     Active Substance: SODIUM PHOSPHATE, DIBASIC\SODIUM PHOSPHATE, MONOBASIC
     Indication: PRODUCT USED FOR UNKNOWN INDICATION
     Route: 048
     Dates: start: 200611, end: 200611
  4. PREVACID [Concomitant]
     Active Substance: LANSOPRAZOLE

REACTIONS (11)
  - Renal failure acute [None]
  - Renal failure [None]
  - Hyperparathyroidism secondary [None]
  - Nephrolithiasis [None]
  - Renal failure chronic [None]
  - Renal tubular necrosis [None]
  - Hypovolaemia [None]
  - Blood parathyroid hormone increased [None]
  - Nephritis allergic [None]
  - Nephrogenic anaemia [None]
  - Dehydration [None]

NARRATIVE: CASE EVENT DATE: 200612
